FAERS Safety Report 4485236-6 (Version None)
Quarter: 2004Q4

REPORT INFORMATION
  Report Type: 
  Country: None (occurrence: None)
  Receive Date: 20041026
  Receipt Date: 20040824
  Transmission Date: 20050328
  Serious: No
  Sender: FDA-Public Use
  Company Number: US-BRISTOL-MYERS SQUIBB COMPANY-12681425

PATIENT
  Age: 68 Year
  Sex: Female
  Weight: 86 kg

DRUGS (6)
  1. GLUCOPHAGE XR [Suspect]
     Indication: DIABETES MELLITUS
     Route: 048
  2. OPTIRAY 160 [Suspect]
  3. GLUCOTROL [Concomitant]
  4. TIAZAC [Concomitant]
  5. IMDUR [Concomitant]
  6. LASIX [Concomitant]

REACTIONS (1)
  - CONTRAST MEDIA REACTION [None]
